FAERS Safety Report 24751523 (Version 1)
Quarter: 2024Q4

REPORT INFORMATION
  Report Type: Spontaneous
  Country: US (occurrence: US)
  Receive Date: 20241219
  Receipt Date: 20241219
  Transmission Date: 20250114
  Serious: Yes (Death)
  Sender: PACIRA
  Company Number: US-ORG100016242-2024000435

PATIENT
  Age: 64 Year
  Sex: Female
  Weight: 78.5 kg

DRUGS (27)
  1. EXPAREL [Suspect]
     Active Substance: BUPIVACAINE
     Indication: Knee arthroplasty
     Dosage: 266MG EXPAREL + 50ML NORMAL SALINE
     Route: 050
     Dates: start: 20240627, end: 20240627
  2. BUPIVACAINE [Suspect]
     Active Substance: BUPIVACAINE
     Indication: Knee arthroplasty
     Route: 065
     Dates: start: 20240627, end: 20240627
  3. KETOROLAC [Suspect]
     Active Substance: KETOROLAC TROMETHAMINE
     Indication: Knee arthroplasty
     Route: 065
     Dates: start: 20240627, end: 20240627
  4. ROPIVACAINE [Suspect]
     Active Substance: ROPIVACAINE
     Indication: Nerve block
     Dosage: RIGHT SIDE
     Route: 065
     Dates: start: 20240627, end: 20240627
  5. SODIUM CHLORIDE [Concomitant]
     Active Substance: SODIUM CHLORIDE
     Indication: Knee arthroplasty
     Route: 050
     Dates: start: 20240627, end: 20240627
  6. DEXAMETHASONE [Suspect]
     Active Substance: DEXAMETHASONE
     Indication: Nerve block
     Route: 065
     Dates: start: 20240627, end: 20240627
  7. ALPRAZOLAM [Concomitant]
     Active Substance: ALPRAZOLAM
     Indication: Product used for unknown indication
     Dosage: 0.5MG PRN
     Route: 065
  8. ATENOLOL [Concomitant]
     Active Substance: ATENOLOL
     Indication: Product used for unknown indication
     Route: 065
  9. Sinemet CR 50-200 [Concomitant]
     Indication: Product used for unknown indication
     Dosage: NOT PROVIDED
     Route: 065
  10. Sinemet 25-100 [Concomitant]
     Indication: Product used for unknown indication
     Dosage: NOT PROVIDED
     Route: 065
  11. CELEBREX [Concomitant]
     Active Substance: CELECOXIB
     Indication: Product used for unknown indication
     Route: 065
  12. PRILOSEC [Concomitant]
     Active Substance: OMEPRAZOLE MAGNESIUM
     Indication: Product used for unknown indication
     Route: 065
  13. NEURONTIN [Concomitant]
     Active Substance: GABAPENTIN
     Indication: Product used for unknown indication
     Route: 065
  14. TRAZODONE [Concomitant]
     Active Substance: TRAZODONE HYDROCHLORIDE
     Indication: Product used for unknown indication
     Route: 065
  15. OXYCONTIN [Concomitant]
     Active Substance: OXYCODONE HYDROCHLORIDE
     Indication: Spinal anaesthesia
     Route: 065
     Dates: start: 20240627
  16. TYLENOL [Concomitant]
     Active Substance: ACETAMINOPHEN
     Indication: Spinal anaesthesia
     Route: 065
     Dates: start: 20240627
  17. TRANEXAMIC ACID [Concomitant]
     Active Substance: TRANEXAMIC ACID
     Indication: Spinal anaesthesia
     Route: 065
     Dates: start: 20240627
  18. SCOPOLAMINE TRANSDERMAL SYSTEM [Concomitant]
     Active Substance: SCOPOLAMINE
     Indication: Spinal anaesthesia
     Dosage: NOT PROVIDED
     Route: 062
     Dates: start: 20240627
  19. CELEBREX [Concomitant]
     Active Substance: CELECOXIB
     Indication: Spinal anaesthesia
     Route: 065
     Dates: start: 20240627
  20. MIDAZOLAM [Concomitant]
     Active Substance: MIDAZOLAM
     Indication: Epidural anaesthesia
     Route: 008
     Dates: start: 20240627
  21. CEFAZOLIN SODIUM [Concomitant]
     Active Substance: CEFAZOLIN SODIUM
     Indication: Epidural anaesthesia
     Route: 008
     Dates: start: 20240627
  22. BUPIVACAINE [Concomitant]
     Active Substance: BUPIVACAINE
     Indication: Epidural anaesthesia
     Route: 008
     Dates: start: 20240627
  23. BUPIVACAINE [Concomitant]
     Active Substance: BUPIVACAINE
     Indication: Epidural anaesthesia
     Route: 065
     Dates: start: 20240627
  24. PROPOFOL [Concomitant]
     Active Substance: PROPOFOL
     Indication: Epidural anaesthesia
     Dosage: 75MCG/KG/MIN
     Route: 008
     Dates: start: 20240627
  25. HYDROMORPHONE [Concomitant]
     Active Substance: HYDROMORPHONE
     Indication: Product used for unknown indication
     Route: 065
     Dates: start: 20240627
  26. FENTANYL [Concomitant]
     Active Substance: FENTANYL
     Indication: Product used for unknown indication
     Dosage: AT 9:55AM, 10, 10:05, 10:10 - 25MCG EACH
     Route: 065
     Dates: start: 20240627
  27. UNSPECIFIED INGREDIENT [Concomitant]
     Active Substance: UNSPECIFIED INGREDIENT
     Indication: General anaesthesia
     Dosage: NOT PROVIDED
     Route: 065
     Dates: start: 20240627, end: 20240627

REACTIONS (6)
  - Systemic toxicity [Fatal]
  - Cardiac arrest [Fatal]
  - Respiratory arrest [Fatal]
  - Clonic convulsion [Fatal]
  - Procedural pain [Unknown]
  - Labelled drug-drug interaction medication error [Unknown]

NARRATIVE: CASE EVENT DATE: 20240627
